FAERS Safety Report 10964490 (Version 1)
Quarter: 2015Q1

REPORT INFORMATION
  Report Type: Spontaneous
  Country: US (occurrence: None)
  Receive Date: 20150226
  Receipt Date: 20150226
  Transmission Date: 20150721
  Serious: Yes (Other)
  Sender: FDA-Public Use
  Company Number: TPA2012A01497

PATIENT
  Age: 57 Year
  Sex: Male
  Weight: 82.56 kg

DRUGS (3)
  1. METFORMIN [Concomitant]
     Active Substance: METFORMIN HYDROCHLORIDE
  2. AMARYL [Concomitant]
     Active Substance: GLIMEPIRIDE
  3. ACTOS [Suspect]
     Active Substance: PIOGLITAZONE HYDROCHLORIDE
     Indication: TYPE 2 DIABETES MELLITUS
     Dates: start: 200107, end: 201106

REACTIONS (4)
  - Urinary tract infection [None]
  - Haematuria [None]
  - Dysuria [None]
  - Bladder cancer [None]

NARRATIVE: CASE EVENT DATE: 200510
